FAERS Safety Report 5805189-5 (Version None)
Quarter: 2008Q3

REPORT INFORMATION
  Report Type: 
  Country: None (occurrence: None)
  Receive Date: 20080709
  Receipt Date: 20080625
  Transmission Date: 20090109
  Serious: Yes (Other)
  Sender: FDA-Public Use
  Company Number: JO-GENENTECH-261664

PATIENT
  Age: 30 Year
  Sex: Female

DRUGS (5)
  1. MABTHERA [Suspect]
     Indication: SYSTEMIC LUPUS ERYTHEMATOSUS
     Dosage: 1 G, X2
     Route: 042
     Dates: start: 20080429
  2. IMURAN [Concomitant]
     Indication: DRUG USE FOR UNKNOWN INDICATION
  3. CORTICOIDS NOS [Concomitant]
     Indication: SYSTEMIC LUPUS ERYTHEMATOSUS
     Dates: start: 20080429
  4. ANTIHISTAMINE NOS [Concomitant]
     Indication: PREMEDICATION
     Dates: start: 20080429
  5. ACETAMINOPHEN [Concomitant]
     Indication: PREMEDICATION
     Dates: start: 20080429, end: 20080429

REACTIONS (4)
  - FATIGUE [None]
  - MUSCULOSKELETAL STIFFNESS [None]
  - PNEUMONITIS [None]
  - WHITE BLOOD CELL COUNT DECREASED [None]
